FAERS Safety Report 6282688-6 (Version None)
Quarter: 2009Q3

REPORT INFORMATION
  Report Type: 
  Country: None (occurrence: None)
  Receive Date: 20090724
  Receipt Date: 20090716
  Transmission Date: 20100115
  Serious: Yes (Other)
  Sender: FDA-Public Use
  Company Number: BR-WATSON-2009-05543

PATIENT
  Age: 71 Year
  Sex: Male

DRUGS (2)
  1. DILTIA XT (WATSON LABORATORIES) [Suspect]
     Indication: HYPERTENSION
     Dosage: UNK
  2. NIACIN [Suspect]
     Indication: DYSLIPIDAEMIA

REACTIONS (3)
  - HYPERINSULINAEMIA [None]
  - HYPOGLYCAEMIA [None]
  - INSULIN AUTOIMMUNE SYNDROME [None]
